FAERS Safety Report 17815299 (Version 1)
Quarter: 2020Q2

REPORT INFORMATION
  Report Type: Spontaneous
  Country: US (occurrence: US)
  Receive Date: 20200521
  Receipt Date: 20200521
  Transmission Date: 20200714
  Serious: Yes (Disabling, Other)
  Sender: FDA-Public Use
  Company Number: None

PATIENT
  Age: 62 Year
  Sex: Female
  Weight: 54 kg

DRUGS (9)
  1. SULFAMETHOXAZOLE-TMP DS [Suspect]
     Active Substance: SULFAMETHOXAZOLE\TRIMETHOPRIM
     Indication: PRODUCT USED FOR UNKNOWN INDICATION
     Dosage: ?          QUANTITY:14 TABLET(S);?
     Route: 048
     Dates: start: 20200515, end: 20200518
  2. VITAMIN C [Concomitant]
     Active Substance: ASCORBIC ACID
  3. MAG CITRATE [Concomitant]
  4. COENZYME Q10 [Concomitant]
     Active Substance: UBIDECARENONE
  5. GLUCOSAMONE [Concomitant]
  6. MULTIVITAMINS [Concomitant]
     Active Substance: VITAMINS
  7. PROBIOTICS [Concomitant]
     Active Substance: PROBIOTICS NOS
  8. ZINC 15 MG [Concomitant]
  9. VITAMIN K [Concomitant]
     Active Substance: PHYTONADIONE

REACTIONS (5)
  - Muscular weakness [None]
  - Chromaturia [None]
  - Dizziness [None]
  - Diarrhoea [None]
  - Palpitations [None]

NARRATIVE: CASE EVENT DATE: 20200518
